FAERS Safety Report 18683201 (Version 1)
Quarter: 2020Q4

REPORT INFORMATION
  Report Type: Spontaneous
  Country: US (occurrence: US)
  Receive Date: 20201228
  Receipt Date: 20201228
  Transmission Date: 20210114
  Serious: Yes (Life-Threatening, Hospitalization)
  Sender: FDA-Public Use
  Company Number: None

PATIENT
  Age: 78 Year
  Sex: Male
  Weight: 99.79 kg

DRUGS (1)
  1. WARFARIN (WARFARIN NA 4MG TAB) [Suspect]
     Active Substance: WARFARIN SODIUM
     Indication: ATRIAL FIBRILLATION
     Route: 048

REACTIONS (5)
  - Treatment noncompliance [None]
  - Transient ischaemic attack [None]
  - Product dose omission in error [None]
  - Fall [None]
  - Cerebrovascular accident [None]

NARRATIVE: CASE EVENT DATE: 20200809
